FAERS Safety Report 12185368 (Version 1)
Quarter: 2016Q1

REPORT INFORMATION
  Report Type: Spontaneous
  Country: US (occurrence: US)
  Receive Date: 20160316
  Receipt Date: 20160316
  Transmission Date: 20160526
  Serious: Yes (Hospitalization)
  Sender: FDA-Public Use
  Company Number: US-MYLANLABS-2016M1011069

PATIENT

DRUGS (2)
  1. ATENOLOL/CHLORTALIDONE [Suspect]
     Active Substance: ATENOLOL\CHLORTHALIDONE
     Indication: PRODUCT USED FOR UNKNOWN INDICATION
     Dosage: ATENOLOL AT 50MG/ CHLORTALIDONE AT 25 MG
     Route: 048
  2. LISINOPRIL. [Suspect]
     Active Substance: LISINOPRIL
     Indication: PRODUCT USED FOR UNKNOWN INDICATION
     Dosage: 40 MG
     Route: 048

REACTIONS (5)
  - Intentional overdose [Recovered/Resolved]
  - Acute respiratory distress syndrome [Recovered/Resolved]
  - Mental status changes [Recovered/Resolved]
  - Cardiac output decreased [Recovered/Resolved]
  - Hypotension [Recovered/Resolved]
